FAERS Safety Report 9434221 (Version 1)
Quarter: 2013Q3

REPORT INFORMATION
  Report Type: Spontaneous
  Country: US (occurrence: None)
  Receive Date: 20130730
  Receipt Date: 20130730
  Transmission Date: 20140515
  Serious: Yes (Other)
  Sender: FDA-Public Use
  Company Number: None

PATIENT
  Age: 59 Year
  Sex: Male
  Weight: 102.06 kg

DRUGS (1)
  1. LEVOFLOXACIN [Suspect]
     Indication: SINUSITIS
     Dosage: 14     1 PER DAY  PO
     Route: 048
     Dates: start: 20130629, end: 20130709

REACTIONS (3)
  - Pain in extremity [None]
  - Local swelling [None]
  - Contraindication to medical treatment [None]
